FAERS Safety Report 11106389 (Version 1)
Quarter: 2015Q2

REPORT INFORMATION
  Report Type: Spontaneous
  Country: US (occurrence: None)
  Receive Date: 20150511
  Receipt Date: 20150511
  Transmission Date: 20150821
  Serious: No
  Sender: FDA-Public Use
  Company Number: None

PATIENT
  Age: 29 Year
  Sex: Male
  Weight: 72.58 kg

DRUGS (6)
  1. METROGEL [Concomitant]
     Active Substance: METRONIDAZOLE
  2. VITAMIN C [Concomitant]
     Active Substance: ASCORBIC ACID
  3. ORACEA [Concomitant]
     Active Substance: DOXYCYCLINE
  4. BHA SERUM [Concomitant]
  5. DUTASTERIDE. [Concomitant]
     Active Substance: DUTASTERIDE
  6. MIRVASO [Suspect]
     Active Substance: BRIMONIDINE TARTRATE
     Indication: PRODUCT USED FOR UNKNOWN INDICATION
     Dosage: 1 PEA SIZE DOT X 5 SPOTS, ONCE DAILY, APPLIED TO A SURFACE, USUALLY THE SKIN
     Route: 061
     Dates: start: 20150501, end: 20150501

REACTIONS (2)
  - Erythema [None]
  - Skin reaction [None]

NARRATIVE: CASE EVENT DATE: 20150501
